FAERS Safety Report 10932041 (Version 3)
Quarter: 2016Q3

REPORT INFORMATION
  Report Type: Spontaneous
  Country: US (occurrence: US)
  Receive Date: 20150319
  Receipt Date: 20160922
  Transmission Date: 20161109
  Serious: Yes (Death, Hospitalization, Other)
  Sender: FDA-Public Use
  Company Number: US-ELI_LILLY_AND_COMPANY-US201503005860

PATIENT
  Age: 0 Day
  Weight: 2.16 kg

DRUGS (10)
  1. CELESTONE [Concomitant]
     Active Substance: BETAMETHASONE
     Route: 064
  2. COLACE [Concomitant]
     Active Substance: DOCUSATE SODIUM
     Route: 064
  3. PRENATAL VITAMINS                  /02014401/ [Concomitant]
     Active Substance: VITAMINS
     Route: 064
  4. DDAVP [Concomitant]
     Active Substance: DESMOPRESSIN ACETATE
     Dosage: UNK
     Route: 065
     Dates: start: 20040602
  5. TERBUTALINE [Concomitant]
     Active Substance: TERBUTALINE
     Indication: TOCOLYSIS
     Route: 064
  6. IRON [Concomitant]
     Active Substance: IRON
     Route: 064
  7. AMPICILLIN [Concomitant]
     Active Substance: AMPICILLIN
     Indication: SEPSIS NEONATAL
     Route: 064
  8. AMPICILLIN [Concomitant]
     Active Substance: AMPICILLIN
     Dosage: 220 MG, BID
     Route: 042
     Dates: start: 20040206
  9. PROZAC [Suspect]
     Active Substance: FLUOXETINE HYDROCHLORIDE
     Indication: PRODUCT USED FOR UNKNOWN INDICATION
     Dosage: UNK UNK, UNKNOWN
     Route: 064
  10. DARVOCET-N 100 [Concomitant]
     Active Substance: ACETAMINOPHEN\PROPOXYPHENE NAPSYLATE
     Indication: HEADACHE
     Route: 064

REACTIONS (13)
  - Haemophilia [Unknown]
  - Metabolic acidosis [Unknown]
  - Hypoperfusion [Unknown]
  - Anaemia neonatal [Unknown]
  - Foetal exposure during pregnancy [Unknown]
  - Premature baby [Unknown]
  - Apgar score low [Unknown]
  - Sepsis neonatal [Unknown]
  - Cerebrovascular accident [Fatal]
  - Nonreassuring foetal heart rate pattern [Unknown]
  - Low birth weight baby [Unknown]
  - Renal hypoplasia [Unknown]
  - Pulmonary hypoplasia [Unknown]

NARRATIVE: CASE EVENT DATE: 20040602
